FAERS Safety Report 5157152-8 (Version None)
Quarter: 2006Q4

REPORT INFORMATION
  Report Type: 
  Country: None (occurrence: None)
  Receive Date: 20061127
  Receipt Date: 20061114
  Transmission Date: 20070319
  Serious: Yes (Life-Threatening)
  Sender: FDA-Public Use
  Company Number: CH-BRISTOL-MYERS SQUIBB COMPANY-13584610

PATIENT
  Age: 85 Year
  Sex: Female

DRUGS (4)
  1. SINEMET [Suspect]
     Indication: PARKINSON'S DISEASE
     Route: 048
     Dates: start: 20060714, end: 20060721
  2. AMLODIPINE BESYLATE [Concomitant]
     Dates: start: 20060520
  3. FUROSEMIDE [Concomitant]
     Dates: start: 20060530
  4. LOSARTAN POTASSIUM [Concomitant]
     Dates: start: 20050301

REACTIONS (4)
  - FATIGUE [None]
  - PYREXIA [None]
  - RENAL FAILURE [None]
  - STARING [None]
